FAERS Safety Report 4727270-4 (Version None)
Quarter: 2005Q3

REPORT INFORMATION
  Report Type: 
  Country: None (occurrence: None)
  Receive Date: 20050728
  Receipt Date: 20050721
  Transmission Date: 20060218
  Serious: Yes (Hospitalization)
  Sender: FDA-Public Use
  Company Number: FR-GLAXOSMITHKLINE-B0388743A

PATIENT
  Age: 75 Year
  Sex: Female

DRUGS (1)
  1. DEROXAT [Suspect]
     Indication: DRUG USE FOR UNKNOWN INDICATION
     Dosage: 20MG PER DAY
     Route: 048
     Dates: start: 20040101, end: 20050630

REACTIONS (8)
  - AGGRESSION [None]
  - CATHETER RELATED COMPLICATION [None]
  - CONFUSIONAL STATE [None]
  - DRUG WITHDRAWAL SYNDROME [None]
  - HYPONATRAEMIA [None]
  - INCOHERENT [None]
  - RENAL FAILURE ACUTE [None]
  - SENSORY DISTURBANCE [None]
